FAERS Safety Report 8629945 (Version 2)
Quarter: 2013Q4

REPORT INFORMATION
  Report Type: Spontaneous
  Country: US (occurrence: US)
  Receive Date: 20120622
  Receipt Date: 20131015
  Transmission Date: 20140711
  Serious: Yes (Hospitalization)
  Sender: FDA-Public Use
  Company Number: US-ASTRAZENECA-2012SE36356

PATIENT
  Age: 43 Year
  Sex: Female
  Weight: 54.4 kg

DRUGS (17)
  1. NEXIUM [Suspect]
     Indication: GASTROOESOPHAGEAL REFLUX DISEASE
     Route: 048
     Dates: start: 2002, end: 2009
  2. NEXIUM [Suspect]
     Indication: DYSPEPSIA
     Route: 048
     Dates: start: 2002, end: 2009
  3. PRILOSEC [Suspect]
     Indication: DYSPEPSIA
     Route: 048
     Dates: start: 2009
  4. PRILOSEC [Suspect]
     Indication: GASTROOESOPHAGEAL REFLUX DISEASE
     Route: 048
     Dates: start: 2009
  5. PREVACID [Concomitant]
     Dates: start: 2009
  6. TUMS [Concomitant]
     Dosage: 500-800 MG UPTO 8 DAYS DAILY
     Dates: start: 199801, end: 199808
  7. TUMS [Concomitant]
     Dates: start: 200405, end: 200412
  8. TOPROL [Concomitant]
     Indication: PALPITATIONS
  9. TOPROL [Concomitant]
     Indication: HYPERTENSION
  10. ZANTAC [Concomitant]
     Indication: HYPERSENSITIVITY
  11. ACYCLOVIR [Concomitant]
  12. SOLODYN [Concomitant]
     Indication: ACNE
  13. XYZAL [Concomitant]
  14. MOTRIN [Concomitant]
  15. HYDROCHLOROTHIAZIDE [Concomitant]
  16. MAGNESIUM OXIDE [Concomitant]
  17. CALCITRIOL [Concomitant]

REACTIONS (9)
  - Ankle fracture [Unknown]
  - Osteopenia [Unknown]
  - Panic attack [Unknown]
  - Sinusitis [Unknown]
  - Vitamin D deficiency [Unknown]
  - Parathyroid disorder [Unknown]
  - Osteoporosis [Unknown]
  - Multiple fractures [Unknown]
  - Ligament sprain [Unknown]
